FAERS Safety Report 9671685 (Version 1)
Quarter: 2013Q4

REPORT INFORMATION
  Report Type: Spontaneous
  Country: US (occurrence: US)
  Receive Date: 20131106
  Receipt Date: 20131106
  Transmission Date: 20140711
  Serious: Yes (Hospitalization)
  Sender: FDA-Public Use
  Company Number: PHHY2013US122704

PATIENT
  Age: 55 Year
  Sex: Male

DRUGS (2)
  1. LABETALOL [Suspect]
  2. AMLODIPINE BESYLATE [Suspect]

REACTIONS (5)
  - Mental status changes [Unknown]
  - Renal failure acute [Unknown]
  - Hypotension [Recovering/Resolving]
  - Heart rate decreased [Unknown]
  - Overdose [Unknown]
